FAERS Safety Report 8003353-0 (Version None)
Quarter: 2011Q4

REPORT INFORMATION
  Report Type: 
  Country: None (occurrence: None)
  Receive Date: 20111222
  Receipt Date: 20111215
  Transmission Date: 20120403
  Serious: Yes (Hospitalization, Other)
  Sender: FDA-Public Use
  Company Number: GB-B.I. PHARMACEUTICALS,INC./RIDGEFIELD-2011-UK-01375UK

PATIENT
  Age: 67 Year
  Sex: Female

DRUGS (6)
  1. PRADAXA [Suspect]
     Indication: EMBOLISM VENOUS
     Dosage: 440 MG
     Route: 048
     Dates: start: 20111108, end: 20111118
  2. CODEINE SULFATE [Concomitant]
  3. ACETAMINOPHEN [Concomitant]
  4. BETAHISTINE [Concomitant]
  5. NAPROXEN [Concomitant]
  6. DALTEPARIN SODIUM [Concomitant]

REACTIONS (2)
  - PULMONARY EMBOLISM [None]
  - DRUG INEFFECTIVE [None]
